FAERS Safety Report 17557534 (Version 2)
Quarter: 2020Q1

REPORT INFORMATION
  Report Type: Spontaneous
  Country: HR (occurrence: HR)
  Receive Date: 20200318
  Receipt Date: 20200325
  Transmission Date: 20200409
  Serious: Yes (Other)
  Sender: FDA-Public Use
  Company Number: HR-MYLANLABS-2020M1028443

PATIENT
  Age: 40 Year
  Sex: Male

DRUGS (4)
  1. BRUFEN EFFECT 400 MG FILM COATED TABLETS [Suspect]
     Active Substance: IBUPROFEN
     Indication: PAIN
     Dosage: 400 MILLIGRAM, ONCE
     Route: 048
     Dates: start: 20200310, end: 20200310
  2. KLAVOCIN                           /00756801/ [Concomitant]
     Active Substance: AMOXICILLIN\CLAVULANATE POTASSIUM
     Indication: PROPHYLAXIS
     Dosage: UNK (875 MG/125 MG) 2 TIMES DAILY
     Route: 048
     Dates: start: 20200310, end: 20200317
  3. FLIXONASE [Concomitant]
     Active Substance: FLUTICASONE PROPIONATE
     Indication: SEASONAL ALLERGY
     Dosage: 50 MICROGRAM (2 INHALATION)
  4. NEOFEN                             /00109201/ [Concomitant]
     Active Substance: IBUPROFEN
     Indication: PAIN
     Dosage: 400 MILLIGRAM (1-2 TIMES DAILY)

REACTIONS (6)
  - Skin laceration [Recovered/Resolved]
  - Dyspnoea [Recovered/Resolved]
  - Loss of consciousness [Recovered/Resolved]
  - Fall [Recovered/Resolved]
  - Pruritus [Recovered/Resolved]
  - Rib fracture [Recovering/Resolving]

NARRATIVE: CASE EVENT DATE: 20200310
